FAERS Safety Report 8831735 (Version 1)
Quarter: 2012Q4

REPORT INFORMATION
  Report Type: 
  Country: US (occurrence: US)
  Receive Date: 20121009
  Receipt Date: 20121009
  Transmission Date: 20130627
  Serious: Yes (Other)
  Sender: FDA-Public Use
  Company Number: US-PFIZER INC-2012137585

PATIENT
  Age: 60 Year
  Sex: Male

DRUGS (1)
  1. CADUET [Suspect]
     Dosage: 5/20, tab daily at h.s.

REACTIONS (4)
  - Pulmonary congestion [Unknown]
  - Heart rate increased [Unknown]
  - Nervous system disorder [Unknown]
  - Ear infection [Unknown]
